FAERS Safety Report 16662473 (Version 1)
Quarter: 2019Q3

REPORT INFORMATION
  Report Type: Report from Study
  Country: US (occurrence: US)
  Receive Date: 20190802
  Receipt Date: 20190802
  Transmission Date: 20191004
  Serious: No
  Sender: FDA-Public Use
  Company Number: US-EXELIXIS-CABO-19018506

PATIENT
  Age: 75 Year
  Sex: Female

DRUGS (3)
  1. CABOMETYX [Suspect]
     Active Substance: CABOZANTINIB S-MALATE
     Dosage: 20 MG, QOD (20 MG QOD ALTERNATING WITH TWO TABLETS (40 MG) QOD)
     Route: 048
     Dates: start: 201808, end: 2018
  2. CABOMETYX [Suspect]
     Active Substance: CABOZANTINIB S-MALATE
     Dosage: 20 MG, QOD (20 MG QOD ALTERNATING WITH TWO TABLETS (40 MG) QOD)
     Route: 048
     Dates: start: 20180918
  3. CABOMETYX [Suspect]
     Active Substance: CABOZANTINIB S-MALATE
     Indication: RENAL CANCER
     Dosage: 60 MG, QD
     Route: 048
     Dates: start: 20180724, end: 2018

REACTIONS (2)
  - Glossodynia [Unknown]
  - Tongue erythema [Unknown]

NARRATIVE: CASE EVENT DATE: 201901
